FAERS Safety Report 23732388 (Version 1)
Quarter: 2024Q2

REPORT INFORMATION
  Report Type: Spontaneous
  Country: US (occurrence: US)
  Receive Date: 20240411
  Receipt Date: 20240411
  Transmission Date: 20240716
  Serious: Yes (Hospitalization)
  Sender: FDA-Public Use
  Company Number: US-JNJFOC-20240417486

PATIENT
  Age: 41 Year
  Sex: Male
  Weight: 88.9 kg

DRUGS (2)
  1. TALVEY [Suspect]
     Active Substance: TALQUETAMAB-TGVS
     Indication: Plasma cell myeloma
     Dosage: MOST RECENT DOSE: 10/JAN/2024
     Route: 058
     Dates: start: 20231218
  2. MAPLIRPACEPT [Suspect]
     Active Substance: MAPLIRPACEPT
     Indication: Plasma cell myeloma
     Route: 042
     Dates: start: 20230918, end: 20231127

REACTIONS (1)
  - Mucosal inflammation [Recovered/Resolved]

NARRATIVE: CASE EVENT DATE: 20240116
